FAERS Safety Report 8063386-5 (Version None)
Quarter: 2011Q4

REPORT INFORMATION
  Report Type: 
  Country: None (occurrence: None)
  Receive Date: 20111220
  Receipt Date: 20110728
  Transmission Date: 20120403
  Serious: Yes (Hospitalization)
  Sender: FDA-Public Use
  Company Number: PHHY2011US68433

PATIENT
  Age: 46 Year
  Sex: Female
  Weight: 73 kg

DRUGS (19)
  1. ABILIFY (ARIPRAZOLE) [Concomitant]
  2. PROGRAF [Concomitant]
  3. SANDIMMUNE [Concomitant]
  4. DOXYCYCLINE [Concomitant]
  5. SORIATANE [Concomitant]
  6. ATENOLOL [Concomitant]
  7. LAMICTAL [Concomitant]
  8. PREDNISONE TAB [Concomitant]
  9. ZOFRAN [Concomitant]
  10. MYFORTIC [Suspect]
     Indication: PROPHYLAXIS AGAINST TRANSPLANT REJECTION
     Dosage: 1080 MG, ORAL, 250 MG, DAILY,ORAL, 720 MG, DAILY, ORAL
     Route: 048
     Dates: start: 20100806
  11. MYFORTIC [Suspect]
     Indication: PROPHYLAXIS AGAINST TRANSPLANT REJECTION
     Dosage: 1080 MG, ORAL, 250 MG, DAILY,ORAL, 720 MG, DAILY, ORAL
     Route: 048
     Dates: start: 20080712
  12. CARAC (FLUOROURACIL) [Concomitant]
  13. DIAZEPAM [Concomitant]
  14. DIOVAN [Concomitant]
  15. PROTONIX [Concomitant]
  16. TEMAZEPAM [Concomitant]
  17. ADDERALL 10 [Concomitant]
  18. CELEXA [Concomitant]
  19. NORVASC [Concomitant]

REACTIONS (1)
  - PANCREATITIS [None]
